FAERS Safety Report 9564566 (Version 3)
Quarter: 2013Q4

REPORT INFORMATION
  Report Type: Spontaneous
  Country: US (occurrence: US)
  Receive Date: 20130930
  Receipt Date: 20131010
  Transmission Date: 20140711
  Serious: Yes (Other)
  Sender: FDA-Public Use
  Company Number: US-PFIZER INC-2013194497

PATIENT
  Age: 45 Year
  Sex: Female

DRUGS (8)
  1. ZOLOFT [Suspect]
     Dosage: 100 MG, 1X/DAY
     Dates: start: 20110512
  2. CLARITIN [Concomitant]
     Dosage: 10 MG, 1X/DAY
     Dates: start: 20110512
  3. MULTIVITAMINS [Concomitant]
     Dosage: 1 DF, 1X/DAY
     Dates: start: 20110512
  4. OXCARBAZEPINE [Concomitant]
     Dosage: 300 MG, 2X/DAY
     Dates: start: 20110525, end: 20120711
  5. OXCARBAZEPINE [Concomitant]
     Dosage: 600 MG TABLET; TAKE 1/2 TABLET TWICE DAILY
     Dates: start: 20120711
  6. CARBAMAZEPINE [Concomitant]
     Dosage: 200 MG, 2X/DAY
     Dates: start: 20110512, end: 20110609
  7. ESCITALOPRAM OXALATE [Concomitant]
     Dosage: 10 MG, 1X/DAY
     Dates: start: 20111103, end: 20120823
  8. VIMPAT [Concomitant]
     Dosage: 200 MG, 2X/DAY
     Dates: start: 20111103, end: 20120823

REACTIONS (10)
  - Suicidal ideation [Unknown]
  - Grand mal convulsion [Unknown]
  - Convulsion [Unknown]
  - Unresponsive to stimuli [Unknown]
  - Memory impairment [Unknown]
  - Paranoia [Unknown]
  - Depression [Unknown]
  - Anxiety [Unknown]
  - Panic attack [Unknown]
  - Staring [Unknown]
